FAERS Safety Report 4877004-8 (Version None)
Quarter: 2005Q4

REPORT INFORMATION
  Report Type: 
  Country: None (occurrence: None)
  Receive Date: 20051206
  Receipt Date: 20050914
  Transmission Date: 20060501
  Serious: No
  Sender: FDA-Public Use
  Company Number: USA0509108148

PATIENT
  Age: 35 Year
  Sex: Female

DRUGS (4)
  1. CYMBALTA [Suspect]
     Indication: MIGRAINE PROPHYLAXIS
     Dosage: 60  MG DAY
     Dates: start: 20050911
  2. CLIMARA [Concomitant]
  3. AMBIEN [Concomitant]
  4. STADOL [Concomitant]

REACTIONS (2)
  - MIGRAINE [None]
  - NAUSEA [None]
